FAERS Safety Report 22975276 (Version 4)
Quarter: 2023Q4

REPORT INFORMATION
  Report Type: Spontaneous
  Country: US (occurrence: US)
  Receive Date: 20230924
  Receipt Date: 20231101
  Transmission Date: 20240109
  Serious: Yes (Other)
  Sender: FDA-Public Use
  Company Number: US-SANDOZ-SDZ2023US032965

PATIENT
  Age: 54 Year
  Sex: Female
  Weight: 97.27 kg

DRUGS (4)
  1. AZITHROMYCIN [Suspect]
     Active Substance: AZITHROMYCIN
     Indication: Ankylosing spondylitis
     Dosage: UNK
     Route: 065
  2. IBUPROFEN [Suspect]
     Active Substance: IBUPROFEN
     Indication: Ankylosing spondylitis
     Dosage: UNK
     Route: 065
  3. MELOXICAM [Suspect]
     Active Substance: MELOXICAM
     Indication: Ankylosing spondylitis
     Dosage: UNK
     Route: 065
  4. METHOTREXATE [Suspect]
     Active Substance: METHOTREXATE
     Indication: Ankylosing spondylitis
     Dosage: UNK
     Route: 065

REACTIONS (7)
  - Interstitial lung disease [Unknown]
  - Choking [Unknown]
  - Ecchymosis [Unknown]
  - COVID-19 [Unknown]
  - Dizziness [Unknown]
  - Fall [Unknown]
  - Therapeutic product effect incomplete [Unknown]

NARRATIVE: CASE EVENT DATE: 20230501
